FAERS Safety Report 7005818-7 (Version None)
Quarter: 2010Q3

REPORT INFORMATION
  Report Type: 
  Country: None (occurrence: None)
  Receive Date: 20100921
  Receipt Date: 20100914
  Transmission Date: 20110219
  Serious: Yes (Other)
  Sender: FDA-Public Use
  Company Number: US-ELI_LILLY_AND_COMPANY-US201007007822

PATIENT
  Sex: Female

DRUGS (6)
  1. HUMATROPE [Suspect]
     Dosage: 0.4 MG, DAILY (1/D)
  2. ATENOLOL [Concomitant]
     Indication: HYPERTENSION
     Dosage: 50 MG, DAILY (1/D)
  3. COZAAR [Concomitant]
     Indication: HYPERTENSION
     Dosage: 1 D/F, DAILY (1/D)
  4. LEVOXYL [Concomitant]
     Indication: HYPOTHYROIDISM
     Dosage: 137 UG, DAILY (1/D)
  5. HYDROCORTISON [Concomitant]
     Indication: ADRENAL INSUFFICIENCY
     Dosage: 40 MG, DAILY (1/D)
  6. METFORMIN [Concomitant]
     Indication: BLOOD GLUCOSE ABNORMAL
     Dosage: 500 MG, 2/D

REACTIONS (1)
  - BREAST CANCER [None]
